FAERS Safety Report 5878482-8 (Version None)
Quarter: 2008Q3

REPORT INFORMATION
  Report Type: 
  Country: None (occurrence: None)
  Receive Date: 20080911
  Receipt Date: 20080606
  Transmission Date: 20090109
  Serious: No
  Sender: FDA-Public Use
  Company Number: US-AMGEN-KDL258281

PATIENT
  Sex: Female

DRUGS (9)
  1. NEULASTA [Suspect]
     Indication: CHEMOTHERAPY
     Dates: start: 20070601
  2. NEUPOGEN [Suspect]
     Indication: CHEMOTHERAPY
     Dates: start: 20080412
  3. DACOGEN [Concomitant]
  4. LEXAPRO [Concomitant]
  5. BENADRYL [Concomitant]
  6. SUDAFED 12 HOUR [Concomitant]
  7. CISPLATIN [Concomitant]
  8. SEPTRA [Concomitant]
  9. LEVOTHROID [Concomitant]

REACTIONS (8)
  - BACK PAIN [None]
  - DRUG INEFFECTIVE [None]
  - FEELING ABNORMAL [None]
  - HAEMOGLOBIN DECREASED [None]
  - INFLUENZA [None]
  - PAIN IN EXTREMITY [None]
  - PLATELET COUNT DECREASED [None]
  - PYREXIA [None]
